FAERS Safety Report 19190077 (Version 3)
Quarter: 2021Q2

REPORT INFORMATION
  Report Type: Report from Study
  Country: US (occurrence: US)
  Receive Date: 20210428
  Receipt Date: 20210624
  Transmission Date: 20210717
  Serious: Yes (Hospitalization)
  Sender: FDA-Public Use
  Company Number: US-GLAXOSMITHKLINE-US2021GSK090382

PATIENT
  Age: 65 Year
  Sex: Female
  Weight: 53.97 kg

DRUGS (21)
  1. BLINDED DOSTARLIMAB [Suspect]
     Active Substance: DOSTARLIMAB
     Indication: OVARIAN CANCER
     Dosage: 200 MG
     Dates: start: 20190819
  2. PLACEBO [Suspect]
     Active Substance: UNSPECIFIED INGREDIENT
     Indication: OVARIAN CANCER
     Dosage: 200 MG
     Dates: start: 20190819
  3. DOSTARLIMAB/PLACEBO [Suspect]
     Active Substance: DOSTARLIMAB
     Indication: OVARIAN CANCER
     Dosage: 500 MG
     Dates: start: 20190502, end: 20190502
  4. DOSTARLIMAB/PLACEBO [Suspect]
     Active Substance: DOSTARLIMAB
     Dosage: 1000 MG
     Dates: start: 20210223, end: 20210223
  5. CARBOPLATIN. [Suspect]
     Active Substance: CARBOPLATIN
     Dosage: UNK
     Route: 042
     Dates: start: 20210413, end: 20210413
  6. BLINDED NIRAPARIB [Suspect]
     Active Substance: NIRAPARIB
     Dosage: 100 MG
     Dates: end: 20210317
  7. CARBOPLATIN. [Suspect]
     Active Substance: CARBOPLATIN
     Dosage: 6 AUC
     Route: 042
     Dates: start: 20190726, end: 20190726
  8. BLINDED NIRAPARIB [Suspect]
     Active Substance: NIRAPARIB
     Indication: OVARIAN CANCER
     Dosage: 200 MG
     Dates: start: 20190819
  9. PLACEBO [Suspect]
     Active Substance: UNSPECIFIED INGREDIENT
     Dosage: 100 MG
     Dates: end: 20210317
  10. CARBOPLATIN. [Suspect]
     Active Substance: CARBOPLATIN
     Indication: OVARIAN CANCER
     Dosage: 6 AUC
     Route: 042
     Dates: start: 20190411, end: 20190411
  11. PACLITAXEL. [Suspect]
     Active Substance: PACLITAXEL
     Indication: OVARIAN CANCER
     Dosage: 292 MG
     Route: 042
     Dates: start: 20190411, end: 20190411
  12. PACLITAXEL. [Suspect]
     Active Substance: PACLITAXEL
     Dosage: 297 MG
     Route: 042
     Dates: start: 20190726, end: 20190726
  13. PLACEBO [Suspect]
     Active Substance: UNSPECIFIED INGREDIENT
     Indication: OVARIAN CANCER
     Dosage: 200 MG
     Dates: start: 20190819
  14. BEVACIZUMAB. [Suspect]
     Active Substance: BEVACIZUMAB
     Indication: OVARIAN CANCER
     Dosage: 7.5 MG/KG
     Route: 042
     Dates: start: 20190411, end: 20190411
  15. BEVACIZUMAB. [Suspect]
     Active Substance: BEVACIZUMAB
     Dosage: 449 MG/KG
     Route: 042
     Dates: start: 20200706, end: 20200706
  16. BLINDED DOSTARLIMAB [Suspect]
     Active Substance: DOSTARLIMAB
     Dosage: 100 MG
     Dates: end: 20210317
  17. PLACEBO [Suspect]
     Active Substance: UNSPECIFIED INGREDIENT
     Dosage: 100 MG
     Dates: end: 20210317
  18. DOCETAXEL. [Concomitant]
     Active Substance: DOCETAXEL
     Dosage: UNK
  19. CISPLATIN. [Concomitant]
     Active Substance: CISPLATIN
     Dosage: UNK
  20. DIPHENHYDRAMINE. [Concomitant]
     Active Substance: DIPHENHYDRAMINE
     Indication: DERMATITIS
     Dosage: 25 MG, SINGLE
     Route: 048
     Dates: start: 20210416, end: 20210416
  21. DOXIL [Concomitant]
     Active Substance: DOXORUBICIN HYDROCHLORIDE
     Dosage: UNK

REACTIONS (1)
  - Pancreatitis acute [Recovered/Resolved]

NARRATIVE: CASE EVENT DATE: 20210416
